FAERS Safety Report 6218877-6 (Version None)
Quarter: 2009Q2

REPORT INFORMATION
  Report Type: 
  Country: None (occurrence: None)
  Receive Date: 20090608
  Receipt Date: 20090525
  Transmission Date: 20091009
  Serious: Yes (Other)
  Sender: FDA-Public Use
  Company Number: SE-ELI_LILLY_AND_COMPANY-SE200906000933

PATIENT
  Age: 45 Year
  Sex: Female

DRUGS (1)
  1. YENTREVE [Suspect]
     Dosage: 40 MG, 2/D
     Route: 065
     Dates: start: 20050829, end: 20050930

REACTIONS (2)
  - ROAD TRAFFIC ACCIDENT [None]
  - VISUAL FIELD DEFECT [None]
